FAERS Safety Report 8831120 (Version 2)
Quarter: 2014Q3

REPORT INFORMATION
  Report Type: Report from Study
  Country: RU (occurrence: RU)
  Receive Date: 20121008
  Receipt Date: 20140807
  Transmission Date: 20150326
  Serious: Yes (Hospitalization)
  Sender: FDA-Public Use
  Company Number: PHHO2012RU014341

PATIENT
  Age: 66 Year
  Sex: Female
  Weight: 85.1 kg

DRUGS (17)
  1. LCZ696 [Suspect]
     Active Substance: INVESTIGATIONAL PRODUCT
     Indication: CARDIAC FAILURE CHRONIC
     Dosage: 200 MG, BID
     Route: 048
     Dates: start: 20110516, end: 20120911
  2. DIGOXIN. [Suspect]
     Active Substance: DIGOXIN
  3. ENOXAPARIN [Suspect]
     Active Substance: ENOXAPARIN
  4. INDAPAMIDE. [Suspect]
     Active Substance: INDAPAMIDE
  5. ANAPRILIN [Suspect]
     Active Substance: PROPRANOLOL HYDROCHLORIDE
  6. PERINDOPRIL [Suspect]
     Active Substance: PERINDOPRIL
  7. BISOPROLOL [Concomitant]
     Active Substance: BISOPROLOL
     Indication: CARDIAC FAILURE CHRONIC
     Dosage: 5 MG, QD
     Route: 048
     Dates: start: 201011, end: 20120911
  8. NITROGLYCERIN. [Concomitant]
     Active Substance: NITROGLYCERIN
     Indication: CORONARY ARTERY DISEASE
     Dosage: PRN
     Route: 060
     Dates: start: 201011
  9. PHENAZEPAM [Suspect]
     Active Substance: PHENAZEPAM
  10. HYPOTHIAZID [Concomitant]
     Indication: CARDIAC FAILURE CHRONIC
     Dosage: 12.5 MG, QD
     Route: 048
     Dates: start: 201011, end: 20120911
  11. LOSARTAN [Suspect]
     Active Substance: LOSARTAN
  12. LCZ696 [Suspect]
     Active Substance: INVESTIGATIONAL PRODUCT
     Dosage: 200 MG, BID
     Route: 048
     Dates: start: 20120929
  13. RELANIUM (DIAZEPAM) [Suspect]
     Active Substance: DIAZEPAM
  14. WARFARIN [Concomitant]
     Active Substance: WARFARIN
     Indication: ATRIAL FIBRILLATION
     Dosage: 5 MG, QD
     Route: 048
     Dates: start: 201011
  15. MONOCINQUE [Suspect]
     Active Substance: ISOSORBIDE MONONITRATE
  16. ATORVASTATIN [Concomitant]
     Active Substance: ATORVASTATIN
     Indication: CORONARY ARTERY DISEASE
     Dosage: 20 MG, QD
     Route: 048
     Dates: start: 201011
  17. AMIODARONE [Concomitant]
     Active Substance: AMIODARONE
     Indication: ATRIAL FIBRILLATION
     Dosage: 200 MG, QD
     Route: 048
     Dates: start: 201011

REACTIONS (1)
  - Coronary artery disease [Recovered/Resolved]

NARRATIVE: CASE EVENT DATE: 20120912
